FAERS Safety Report 8208057-7 (Version None)
Quarter: 2012Q1

REPORT INFORMATION
  Report Type: 
  Country: None (occurrence: None)
  Receive Date: 20120314
  Receipt Date: 20120303
  Transmission Date: 20120608
  Serious: Yes (Hospitalization, Other)
  Sender: FDA-Public Use
  Company Number: PHHY2012DE019681

PATIENT
  Sex: Female
  Weight: 91 kg

DRUGS (11)
  1. ASPIRIN [Concomitant]
     Indication: CARDIAC DISORDER
     Dosage: 100 MG, PER DAY
     Route: 048
     Dates: start: 20111004
  2. PRAVASTATIN [Concomitant]
     Indication: BLOOD CHOLESTEROL
     Dosage: 10 MG, PER DAY
     Route: 048
     Dates: start: 20091222
  3. ORAL ANTIDIABETICS [Concomitant]
     Indication: DIABETES MELLITUS
  4. ACE INHIBITORS [Concomitant]
     Dates: start: 20100526
  5. RAMIPRIL [Concomitant]
     Indication: CARDIAC DISORDER
     Dosage: 10 MG, PER DAY
     Route: 048
     Dates: start: 20010514
  6. ANTIHYPERTENSIVE DRUGS [Concomitant]
  7. RASILEZ [Suspect]
     Indication: HYPERTENSION
     Route: 048
     Dates: start: 20090416, end: 20100526
  8. LEVOTHYROXINE SODIUM [Concomitant]
     Dosage: 125 UG, PER DAY
     Route: 048
     Dates: start: 20081021
  9. DIURETICS [Concomitant]
  10. PLATELET AGGREGATION INHIBITORS [Concomitant]
  11. ACTRAPHANE HM [Concomitant]
     Indication: DIABETES MELLITUS
     Dosage: 68 IU, PER DAY
     Route: 058
     Dates: start: 20010406

REACTIONS (3)
  - ASTHMA [None]
  - LIVER ABSCESS [None]
  - ARRHYTHMIA [None]
